FAERS Safety Report 5806336-1 (Version None)
Quarter: 2008Q3

REPORT INFORMATION
  Report Type: 
  Country: None (occurrence: None)
  Receive Date: 20080708
  Receipt Date: 20080620
  Transmission Date: 20090109
  Serious: Yes (Other)
  Sender: FDA-Public Use
  Company Number: WAES 0806USA07715

PATIENT
  Age: 53 Year
  Sex: Female

DRUGS (6)
  1. CAP VORINOSTAT [Suspect]
     Indication: MULTIPLE MYELOMA
     Dosage: 300 MG DAILY PO
     Route: 048
     Dates: start: 20080325, end: 20080608
  2. VELCADE [Suspect]
     Indication: MULTIPLE MYELOMA
     Dosage: 2.4 MG DAILY IV
     Route: 042
     Dates: start: 20080325, end: 20080602
  3. AMBIEN [Concomitant]
  4. CORZIDE TABLETS [Concomitant]
  5. VALTREX [Concomitant]
  6. ZOFRAN [Concomitant]

REACTIONS (1)
  - ALANINE AMINOTRANSFERASE INCREASED [None]
